FAERS Safety Report 6573442-6 (Version None)
Quarter: 2010Q1

REPORT INFORMATION
  Report Type: 
  Country: None (occurrence: None)
  Receive Date: 20100208
  Receipt Date: 20100201
  Transmission Date: 20100710
  Serious: Yes (Hospitalization)
  Sender: FDA-Public Use
  Company Number: US-RB-017784-09

PATIENT
  Sex: Female

DRUGS (2)
  1. SUBUTEX [Suspect]
     Dosage: PATIENT HAS BEEN ON AND OFF SUBUTEX (DOSING INFORMATION UNKNOWN).
     Route: 065
  2. SUBOXONE [Suspect]
     Dosage: PATIENT HAS BEEN ON AND OFF SUBOXONE (DOSING INFORMATION UNKNOWN).
     Route: 065

REACTIONS (1)
  - PANCREATITIS [None]
